FAERS Safety Report 11531450 (Version 2)
Quarter: 2015Q3

REPORT INFORMATION
  Report Type: Report from Study
  Country: BR (occurrence: BR)
  Receive Date: 20150921
  Receipt Date: 20150922
  Transmission Date: 20151125
  Serious: Yes (Hospitalization)
  Sender: FDA-Public Use
  Company Number: ALCN2015BR005568

PATIENT
  Age: 3 Year
  Sex: Female
  Weight: 13 kg

DRUGS (2)
  1. AZORGA [Suspect]
     Active Substance: BRINZOLAMIDE\TIMOLOL MALEATE
     Indication: INTRAOCULAR PRESSURE FLUCTUATION
  2. AZORGA [Suspect]
     Active Substance: BRINZOLAMIDE\TIMOLOL MALEATE
     Indication: INTRAOCULAR PRESSURE FLUCTUATION
     Dosage: 1 GTT, QD
     Route: 047
     Dates: start: 20150623

REACTIONS (2)
  - Pneumonia [Recovered/Resolved]
  - Allergic bronchitis [Recovered/Resolved]

NARRATIVE: CASE EVENT DATE: 201506
